FAERS Safety Report 4487687-2 (Version None)
Quarter: 2004Q4

REPORT INFORMATION
  Report Type: 
  Country: None (occurrence: None)
  Receive Date: 20041028
  Receipt Date: 20041002
  Transmission Date: 20050328
  Serious: Yes (Hospitalization)
  Sender: FDA-Public Use
  Company Number: DE-ABBOTT-04P-062-0276203-00

PATIENT
  Sex: Female
  Weight: 54 kg

DRUGS (3)
  1. KLACID PRO [Suspect]
     Indication: SUICIDE ATTEMPT
  2. ASPIRIN [Suspect]
     Indication: SUICIDE ATTEMPT
     Route: 048
  3. DIHYDROCODEINE BITARTRATE [Suspect]
     Indication: SUICIDE ATTEMPT
     Dosage: FEW MILLIGRAMS
     Route: 048

REACTIONS (5)
  - ALCOHOL USE [None]
  - MULTIPLE DRUG OVERDOSE INTENTIONAL [None]
  - OVERDOSE [None]
  - SUICIDE ATTEMPT [None]
  - VOMITING [None]
